FAERS Safety Report 14384962 (Version 1)
Quarter: 2018Q1

REPORT INFORMATION
  Report Type: Report from Study
  Country: CN (occurrence: CN)
  Receive Date: 20180115
  Receipt Date: 20180115
  Transmission Date: 20180509
  Serious: Yes (Other)
  Sender: FDA-Public Use
  Company Number: CN-MYLANLABS-2018M1000736

PATIENT
  Age: 68 Year
  Sex: Female

DRUGS (2)
  1. CISPLATIN. [Suspect]
     Active Substance: CISPLATIN
     Indication: HEPATOCELLULAR CARCINOMA
     Dosage: 1 CYCLE
     Route: 065
  2. PIRARUBICIN [Suspect]
     Active Substance: PIRARUBICIN
     Indication: HEPATOCELLULAR CARCINOMA
     Dosage: 1 CYCLE
     Route: 065

REACTIONS (2)
  - Drug intolerance [Unknown]
  - Bone marrow failure [Unknown]
